FAERS Safety Report 9807831 (Version 1)
Quarter: 2014Q1

REPORT INFORMATION
  Report Type: Spontaneous
  Country: US (occurrence: US)
  Receive Date: 20140110
  Receipt Date: 20140110
  Transmission Date: 20141002
  Serious: No
  Sender: FDA-Public Use
  Company Number: US-TEVA-455108USA

PATIENT
  Age: 31 Year
  Sex: Female
  Weight: 56.75 kg

DRUGS (3)
  1. PARAGARD 380A [Suspect]
     Indication: CONTRACEPTION
     Route: 015
     Dates: start: 20131126, end: 20140106
  2. MULTI-VITAMINS [Concomitant]
     Indication: NUTRITIONAL SUPPLEMENTATION
  3. GLUCOSAMINE [Concomitant]
     Indication: NUTRITIONAL SUPPLEMENTATION

REACTIONS (3)
  - Metrorrhagia [Recovered/Resolved]
  - Menorrhagia [Recovered/Resolved]
  - Device expulsion [Recovered/Resolved]
